FAERS Safety Report 20641109 (Version 3)
Quarter: 2022Q2

REPORT INFORMATION
  Report Type: Report from Study
  Country: DE (occurrence: DE)
  Receive Date: 20220327
  Receipt Date: 20220513
  Transmission Date: 20220720
  Serious: Yes (Death)
  Sender: FDA-Public Use
  Company Number: DE-NOVARTISPH-NVSC2021DE289291

PATIENT
  Age: 61 Year
  Sex: Female
  Weight: 76.8 kg

DRUGS (3)
  1. KISQALI [Suspect]
     Active Substance: RIBOCICLIB
     Indication: Breast cancer metastatic
     Dosage: 600 MG, QD  (SCHEMA 21 DAYS INTAKE, 7 DAYS PAUSE)
     Route: 048
     Dates: start: 20201109, end: 20210701
  2. EXEMESTANE [Suspect]
     Active Substance: EXEMESTANE
     Indication: Breast cancer metastatic
     Dosage: 25 MG, QD
     Route: 048
     Dates: start: 20201109, end: 20210701
  3. EVEROLIMUS [Suspect]
     Active Substance: EVEROLIMUS
     Indication: Breast cancer metastatic
     Dosage: 10 MG, QD (ONGOING OR 01 JUL 2021)
     Route: 048
     Dates: start: 20210701, end: 20210701

REACTIONS (4)
  - Pleural effusion [Fatal]
  - Dyspnoea [Fatal]
  - Hypoxia [Fatal]
  - Metastases to liver [Fatal]

NARRATIVE: CASE EVENT DATE: 20201110
